FAERS Safety Report 4771259-6 (Version None)
Quarter: 2005Q3

REPORT INFORMATION
  Report Type: 
  Country: None (occurrence: None)
  Receive Date: 20050914
  Receipt Date: 20050831
  Transmission Date: 20060218
  Serious: Yes (Hospitalization, Other)
  Sender: FDA-Public Use
  Company Number: USA0508106968

PATIENT
  Age: 75 Year
  Sex: Female

DRUGS (3)
  1. FORTEO [Suspect]
     Indication: OSTEOPOROSIS
  2. CARDURA [Concomitant]
  3. CLONIDINE [Concomitant]

REACTIONS (9)
  - BLOOD CALCIUM DECREASED [None]
  - BLOOD UREA INCREASED [None]
  - DEHYDRATION [None]
  - LIGAMENT INJURY [None]
  - MUSCLE SPASMS [None]
  - MYALGIA [None]
  - PHARMACEUTICAL PRODUCT COMPLAINT [None]
  - SCREAMING [None]
  - TREMOR [None]
